FAERS Safety Report 9992675 (Version 1)
Quarter: 2014Q1

REPORT INFORMATION
  Report Type: Spontaneous
  Country: US (occurrence: US)
  Receive Date: 20140310
  Receipt Date: 20140310
  Transmission Date: 20141002
  Serious: Yes (Other)
  Sender: FDA-Public Use
  Company Number: US-PFIZER INC-2014068569

PATIENT
  Sex: Female

DRUGS (3)
  1. EFFEXOR XR [Suspect]
     Dosage: UNK
     Route: 048
  2. EFFEXOR XR [Suspect]
     Dosage: 300 MG (TWO ORAL CAPSULES OF 150MG), 2X/DAY
     Route: 048
     Dates: start: 201304
  3. LAMICTAL [Concomitant]
     Dosage: UNK

REACTIONS (6)
  - Dementia [Unknown]
  - Memory impairment [Unknown]
  - Muscle twitching [Unknown]
  - Confusional state [Unknown]
  - Feeling abnormal [Unknown]
  - Overdose [Unknown]
